FAERS Safety Report 8889178 (Version 2)
Quarter: 2012Q4

REPORT INFORMATION
  Report Type: 
  Country: JP (occurrence: JP)
  Receive Date: 20121106
  Receipt Date: 20121129
  Transmission Date: 20130627
  Serious: Yes (Life-Threatening)
  Sender: FDA-Public Use
  Company Number: JP-TEVA-365541ISR

PATIENT
  Age: 85 Year
  Sex: Male

DRUGS (1)
  1. DONEPEZIL HYDROCHLORIDE [Suspect]
     Indication: DEMENTIA ALZHEIMER^S TYPE
     Dosage: 10 Milligram Daily;
     Route: 048
     Dates: start: 201202, end: 20121015

REACTIONS (2)
  - Dyskinesia [Not Recovered/Not Resolved]
  - Jaundice [Not Recovered/Not Resolved]
